FAERS Safety Report 7957312-4 (Version None)
Quarter: 2011Q4

REPORT INFORMATION
  Report Type: 
  Country: None (occurrence: None)
  Receive Date: 20111205
  Receipt Date: 20110826
  Transmission Date: 20120403
  Serious: No
  Sender: FDA-Public Use
  Company Number: US-BAYER-2011-084938

PATIENT
  Sex: Female

DRUGS (7)
  1. ALEVE (CAPLET) [Suspect]
     Indication: SINUS HEADACHE
  2. ALKA-SELTZER PLUS SINUS FORMULA [Suspect]
     Indication: SINUS HEADACHE
  3. ALKA-SELTZER PLUS SINUS FORMULA [Suspect]
     Indication: EYE PAIN
  4. ALEVE (CAPLET) [Suspect]
     Indication: PYREXIA
  5. BENADRYL [Concomitant]
  6. ALEVE (CAPLET) [Suspect]
     Indication: EYE PAIN
  7. ALKA-SELTZER PLUS SINUS FORMULA [Suspect]
     Indication: PYREXIA

REACTIONS (3)
  - PYREXIA [None]
  - SINUS HEADACHE [None]
  - EYE PAIN [None]
